FAERS Safety Report 5496041-6 (Version None)
Quarter: 2007Q4

REPORT INFORMATION
  Report Type: 
  Country: None (occurrence: None)
  Receive Date: 20071025
  Receipt Date: 20070130
  Transmission Date: 20080405
  Serious: No
  Sender: FDA-Public Use
  Company Number: A0635541A

PATIENT
  Age: 24 Year
  Sex: Female

DRUGS (2)
  1. ADVAIR DISKUS 100/50 [Suspect]
     Route: 065
  2. UNSPECIFIED MEDICATIONS [Suspect]
     Indication: DRUG USE FOR UNKNOWN INDICATION
     Route: 065

REACTIONS (5)
  - DENTAL CARIES [None]
  - DRY MOUTH [None]
  - ENAMEL ANOMALY [None]
  - TOOTH RESORPTION [None]
  - TOOTHACHE [None]
